FAERS Safety Report 16654838 (Version 1)
Quarter: 2019Q3

REPORT INFORMATION
  Report Type: Spontaneous
  Country: US (occurrence: US)
  Receive Date: 20190801
  Receipt Date: 20190801
  Transmission Date: 20191004
  Serious: No
  Sender: FDA-Public Use
  Company Number: US-AMGEN-USASP2019119634

PATIENT
  Age: 70 Year
  Sex: Female

DRUGS (1)
  1. PROLIA [Suspect]
     Active Substance: DENOSUMAB
     Indication: OSTEOPOROSIS POSTMENOPAUSAL
     Dosage: 60 MILLIGRAM, Q6MO
     Route: 065

REACTIONS (7)
  - Joint effusion [Unknown]
  - Tremor [Unknown]
  - Limb discomfort [Unknown]
  - Arthralgia [Unknown]
  - Blepharospasm [Unknown]
  - Musculoskeletal discomfort [Unknown]
  - Joint stiffness [Unknown]

NARRATIVE: CASE EVENT DATE: 2019
